FAERS Safety Report 17912370 (Version 2)
Quarter: 2020Q3

REPORT INFORMATION
  Report Type: Spontaneous
  Country: US (occurrence: US)
  Receive Date: 20200618
  Receipt Date: 20200708
  Transmission Date: 20201103
  Serious: No
  Sender: FDA-Public Use
  Company Number: US-SA-2020SA155761

PATIENT

DRUGS (1)
  1. DUPIXENT [Suspect]
     Active Substance: DUPILUMAB
     Indication: DERMATITIS ATOPIC
     Dosage: UNK
     Route: 065
     Dates: start: 201910

REACTIONS (13)
  - Visual impairment [Unknown]
  - Fungal infection [Unknown]
  - Unevaluable event [Unknown]
  - Drug ineffective [Unknown]
  - Urinary tract infection [Unknown]
  - Migraine [Unknown]
  - Pain [Unknown]
  - Injection site swelling [Unknown]
  - Weight decreased [Unknown]
  - Arthralgia [Unknown]
  - Oral herpes [Unknown]
  - Ill-defined disorder [Unknown]
  - Flushing [Unknown]

NARRATIVE: CASE EVENT DATE: 201910
